FAERS Safety Report 6407773-7 (Version None)
Quarter: 2009Q4

REPORT INFORMATION
  Report Type: 
  Country: None (occurrence: None)
  Receive Date: 20091020
  Receipt Date: 20090522
  Transmission Date: 20100525
  Serious: No
  Sender: FDA-Public Use
  Company Number: US-BAUSCH-2009BL002523

PATIENT
  Age: 75 Year
  Sex: Male
  Weight: 80 kg

DRUGS (5)
  1. PROPARACAINE HCL [Suspect]
     Indication: REMOVAL OF FOREIGN BODY FROM EYE
     Route: 047
     Dates: start: 20090416, end: 20090416
  2. IRON [Concomitant]
     Indication: LEUKAEMIA
  3. PABA TAB [Concomitant]
     Indication: VITAMIN SUPPLEMENTATION
     Route: 048
  4. FOLIC ACID [Concomitant]
     Indication: LEUKAEMIA
     Route: 048
  5. WELDERS EYE EASE [Concomitant]
     Indication: EYE BURNS
     Route: 047
     Dates: start: 19740101, end: 19740101

REACTIONS (2)
  - EYE IRRITATION [None]
  - FOREIGN BODY SENSATION IN EYES [None]
